FAERS Safety Report 10760849 (Version 1)
Quarter: 2015Q1

REPORT INFORMATION
  Report Type: Spontaneous
  Country: GB (occurrence: GB)
  Receive Date: 20150204
  Receipt Date: 20150204
  Transmission Date: 20150721
  Serious: Yes (Hospitalization)
  Sender: FDA-Public Use
  Company Number: GB-JNJFOC-20150117310

PATIENT
  Age: 83 Year
  Sex: Male

DRUGS (9)
  1. PARACETAMOL [Concomitant]
     Active Substance: ACETAMINOPHEN
     Route: 065
     Dates: end: 201411
  2. CALCIMAGON [Concomitant]
     Active Substance: CALCIUM
     Route: 065
     Dates: end: 201411
  3. XARELTO [Suspect]
     Active Substance: RIVAROXABAN
     Indication: CEREBROVASCULAR ACCIDENT PROPHYLAXIS
     Route: 048
     Dates: start: 20140206, end: 20141112
  4. XARELTO [Suspect]
     Active Substance: RIVAROXABAN
     Indication: ATRIAL FIBRILLATION
     Route: 048
     Dates: start: 20140206, end: 20141112
  5. AMLODIPINE [Concomitant]
     Active Substance: AMLODIPINE BESYLATE
     Route: 065
     Dates: end: 201411
  6. RAMIPRIL. [Concomitant]
     Active Substance: RAMIPRIL
     Route: 065
     Dates: end: 201411
  7. ATENOLOL. [Concomitant]
     Active Substance: ATENOLOL
     Route: 065
     Dates: end: 201411
  8. ALENDRONIC ACID [Concomitant]
     Active Substance: ALENDRONIC ACID
     Route: 065
     Dates: end: 201411
  9. ATORVASTATIN [Concomitant]
     Active Substance: ATORVASTATIN
     Route: 065
     Dates: end: 201411

REACTIONS (2)
  - Oedema peripheral [Recovered/Resolved]
  - Jaundice [Recovering/Resolving]

NARRATIVE: CASE EVENT DATE: 20141106
